FAERS Safety Report 23478779 (Version 1)
Quarter: 2024Q1

REPORT INFORMATION
  Report Type: Report from Study
  Country: US (occurrence: US)
  Receive Date: 20240205
  Receipt Date: 20240205
  Transmission Date: 20240410
  Serious: No
  Sender: FDA-Public Use
  Company Number: US-EXELIXIS-CABO-23070030

PATIENT
  Sex: Male

DRUGS (11)
  1. CABOMETYX [Suspect]
     Active Substance: CABOZANTINIB S-MALATE
     Indication: Renal cell carcinoma
     Dosage: 40 MG
     Dates: start: 20231014, end: 20231113
  2. GLIPIZIDE [Concomitant]
     Active Substance: GLIPIZIDE
  3. METFORMIN [Concomitant]
     Active Substance: METFORMIN HYDROCHLORIDE
  4. GABAPENTIN [Concomitant]
     Active Substance: GABAPENTIN
  5. ASPIRIN [Concomitant]
     Active Substance: ASPIRIN
  6. ATORVASTATIN [Concomitant]
     Active Substance: ATORVASTATIN
  7. OMEPRAZOLE [Concomitant]
     Active Substance: OMEPRAZOLE
  8. TAMSULOSIN [Concomitant]
     Active Substance: TAMSULOSIN
  9. AMLODIPINE [Concomitant]
     Active Substance: AMLODIPINE BESYLATE
  10. LISINOPRIL [Concomitant]
     Active Substance: LISINOPRIL
  11. CALCIUM\VITAMIN D [Concomitant]
     Active Substance: CALCIUM\VITAMIN D

REACTIONS (11)
  - Gastrooesophageal reflux disease [Not Recovered/Not Resolved]
  - Thyroid hormones increased [Not Recovered/Not Resolved]
  - Diarrhoea [Recovering/Resolving]
  - Stomatitis [Not Recovered/Not Resolved]
  - Palmar-plantar erythrodysaesthesia syndrome [Not Recovered/Not Resolved]
  - Weight decreased [Not Recovered/Not Resolved]
  - Fatigue [Not Recovered/Not Resolved]
  - Blood glucose decreased [Not Recovered/Not Resolved]
  - Eye irritation [Not Recovered/Not Resolved]
  - Taste disorder [Not Recovered/Not Resolved]
  - Decreased appetite [Not Recovered/Not Resolved]
